FAERS Safety Report 24784215 (Version 2)
Quarter: 2025Q1

REPORT INFORMATION
  Report Type: Report from Study
  Country: CL (occurrence: CL)
  Receive Date: 20241227
  Receipt Date: 20250113
  Transmission Date: 20250409
  Serious: Yes (Hospitalization, Other)
  Sender: ABBVIE
  Company Number: CL-ABBVIE-6064239

PATIENT
  Age: 72 Year
  Sex: Female

DRUGS (1)
  1. HUMIRA [Suspect]
     Active Substance: ADALIMUMAB
     Indication: Rheumatoid arthritis
     Dosage: FORM STRENGTH: 40 MG
     Route: 058
     Dates: start: 20190808

REACTIONS (11)
  - Fatigue [Not Recovered/Not Resolved]
  - Pain [Not Recovered/Not Resolved]
  - Suspected COVID-19 [Unknown]
  - Pulmonary thrombosis [Recovering/Resolving]
  - Nasopharyngitis [Recovered/Resolved]
  - Thrombosis [Recovered/Resolved]
  - Unevaluable event [Not Recovered/Not Resolved]
  - Thrombosis [Recovering/Resolving]
  - Dyspnoea [Not Recovered/Not Resolved]
  - Loss of personal independence in daily activities [Unknown]
  - Aortic thrombosis [Not Recovered/Not Resolved]

NARRATIVE: CASE EVENT DATE: 20240901
